FAERS Safety Report 14245117 (Version 1)
Quarter: 2017Q4

REPORT INFORMATION
  Report Type: Spontaneous
  Country: PT (occurrence: PT)
  Receive Date: 20171202
  Receipt Date: 20171202
  Transmission Date: 20180321
  Serious: Yes (Other)
  Sender: FDA-Public Use
  Company Number: PT-AMGEN-PRTSP2017178698

PATIENT
  Age: 71 Year
  Sex: Female

DRUGS (4)
  1. LEVOFOLINATE SODIUM [Concomitant]
     Active Substance: LEVOLEUCOVORIN DISODIUM
     Indication: COLON CANCER
     Dosage: 243 MG, EVERY 15 DAYS
     Route: 040
  2. VECTIBIX [Suspect]
     Active Substance: PANITUMUMAB
     Indication: COLON CANCER
     Dosage: 266 MG, EVERY 15 DAYS
     Route: 042
  3. OXALIPLATIN. [Concomitant]
     Active Substance: OXALIPLATIN
     Indication: COLON CANCER
     Dosage: 103 MG, EVERY 15 DAYS
     Route: 042
  4. FLUOROURACIL. [Concomitant]
     Active Substance: FLUOROURACIL
     Indication: COLON CANCER
     Dosage: 486MG BOLUS + 2916MG BOMBA  2 DIAS
     Route: 042

REACTIONS (3)
  - Hirsutism [Recovering/Resolving]
  - Ectropion [Recovering/Resolving]
  - Growth of eyelashes [Recovering/Resolving]

NARRATIVE: CASE EVENT DATE: 20171023
